FAERS Safety Report 14710322 (Version 1)
Quarter: 2018Q2

REPORT INFORMATION
  Report Type: Spontaneous
  Country: US (occurrence: US)
  Receive Date: 20180403
  Receipt Date: 20180403
  Transmission Date: 20180711
  Serious: Yes (Hospitalization)
  Sender: FDA-Public Use
  Company Number: US-ROCHE-1954101

PATIENT
  Sex: Male

DRUGS (6)
  1. FLUOROURACIL. [Concomitant]
     Active Substance: FLUOROURACIL
  2. ASPIRIN CHILD [Concomitant]
  3. DIOVAN [Concomitant]
     Active Substance: VALSARTAN
  4. COUMADIN [Concomitant]
     Active Substance: WARFARIN SODIUM
  5. SIMVASTATIN. [Concomitant]
     Active Substance: SIMVASTATIN
  6. ERIVEDGE [Suspect]
     Active Substance: VISMODEGIB
     Indication: BASAL CELL CARCINOMA
     Route: 048
     Dates: start: 20170322

REACTIONS (1)
  - Fatigue [Unknown]
